FAERS Safety Report 6042677-3 (Version None)
Quarter: 2009Q1

REPORT INFORMATION
  Report Type: 
  Country: None (occurrence: None)
  Receive Date: 20090119
  Receipt Date: 20090113
  Transmission Date: 20090719
  Serious: Yes (Hospitalization, Other)
  Sender: FDA-Public Use
  Company Number: PHHY2008DE29374

PATIENT
  Sex: Female

DRUGS (1)
  1. TEGRETOL [Suspect]
     Indication: PETIT MAL EPILEPSY
     Dosage: 200MG/DAY
     Route: 048
     Dates: start: 20081119, end: 20081120

REACTIONS (7)
  - ASTHENIA [None]
  - DRUG LEVEL INCREASED [None]
  - FALL [None]
  - FATIGUE [None]
  - GAIT DISTURBANCE [None]
  - OVERDOSE [None]
  - THERAPEUTIC AGENT TOXICITY [None]
